FAERS Safety Report 8538569-8 (Version None)
Quarter: 2012Q3

REPORT INFORMATION
  Report Type: 
  Country: None (occurrence: None)
  Receive Date: 20120718
  Receipt Date: 20120718
  Transmission Date: 20120928
  Serious: Yes (Hospitalization)
  Sender: FDA-Public Use
  Company Number: None

PATIENT
  Sex: Male

DRUGS (1)
  1. BYSTOLIC [Suspect]
     Indication: HYPERTENSION
     Dosage: 5MG ORAL, TOOK 1, TOOK 2
     Route: 048
     Dates: start: 20120508, end: 20120509

REACTIONS (2)
  - BLOOD PRESSURE FLUCTUATION [None]
  - CHEST PAIN [None]
